FAERS Safety Report 5447928-1 (Version None)
Quarter: 2007Q3

REPORT INFORMATION
  Report Type: 
  Country: None (occurrence: None)
  Receive Date: 20070910
  Receipt Date: 20070829
  Transmission Date: 20080115
  Serious: Yes (Other)
  Sender: FDA-Public Use
  Company Number: JP-PFIZER INC-2007072182

PATIENT
  Age: 70 Year

DRUGS (1)
  1. UNASYN [Suspect]
     Dosage: DAILY DOSE:3GRAM
     Route: 042
     Dates: start: 20070720, end: 20070720

REACTIONS (1)
  - INTERSTITIAL LUNG DISEASE [None]
